FAERS Safety Report 23821328 (Version 7)
Quarter: 2024Q3

REPORT INFORMATION
  Report Type: Spontaneous
  Country: US (occurrence: US)
  Receive Date: 20240506
  Receipt Date: 20240829
  Transmission Date: 20241017
  Serious: Yes (Other)
  Sender: PFIZER
  Company Number: US-PFIZER INC-PV202400051401

PATIENT
  Age: 66 Year
  Sex: Female

DRUGS (2)
  1. INLYTA [Suspect]
     Active Substance: AXITINIB
     Indication: Renal cancer
     Dosage: 1-28 OF A 28-DAY CYCLE 28 DAYS
     Route: 048
  2. INLYTA [Suspect]
     Active Substance: AXITINIB
     Dosage: ON DAYS 1-28 OF A 28 DAY CYCLE 28 DAYS
     Route: 048
     Dates: start: 202405, end: 202405

REACTIONS (5)
  - Peripheral swelling [Unknown]
  - Myocardial infarction [Unknown]
  - Coronary artery occlusion [Unknown]
  - Neoplasm progression [Unknown]
  - Fatigue [Unknown]

NARRATIVE: CASE EVENT DATE: 20220101
